FAERS Safety Report 14099199 (Version 1)
Quarter: 2017Q4

REPORT INFORMATION
  Report Type: Spontaneous
  Country: TR (occurrence: TR)
  Receive Date: 20171017
  Receipt Date: 20171017
  Transmission Date: 20180321
  Serious: Yes (Death, Other)
  Sender: FDA-Public Use
  Company Number: TR-PFIZER INC-2017440316

PATIENT
  Age: 66 Year
  Sex: Male

DRUGS (2)
  1. XALKORI [Suspect]
     Active Substance: CRIZOTINIB
     Indication: LUNG ADENOCARCINOMA
     Dosage: 250 MG, 2X/DAY
     Dates: start: 201505
  2. KORDEXA [Concomitant]
     Active Substance: DEXAMETHASONE
     Dosage: 8 MG, 2X1

REACTIONS (9)
  - Muscle spasms [Unknown]
  - Insomnia [Unknown]
  - Neoplasm progression [Fatal]
  - Aggression [Unknown]
  - Dyspnoea [Unknown]
  - Abnormal behaviour [Unknown]
  - Oedema [Unknown]
  - Altered state of consciousness [Unknown]
  - Asthenia [Unknown]

NARRATIVE: CASE EVENT DATE: 201703
